FAERS Safety Report 6369551-7 (Version None)
Quarter: 2009Q3

REPORT INFORMATION
  Report Type: 
  Country: None (occurrence: None)
  Receive Date: 20090923
  Receipt Date: 20090914
  Transmission Date: 20100115
  Serious: Yes (Disabling, Other)
  Sender: FDA-Public Use
  Company Number: AU-WYE-G04424809

PATIENT
  Sex: Male

DRUGS (2)
  1. PRISTIQ [Suspect]
     Indication: ANXIETY
     Dates: start: 20090901, end: 20090901
  2. PRISTIQ [Suspect]
     Indication: DEPRESSION

REACTIONS (4)
  - ALTERED STATE OF CONSCIOUSNESS [None]
  - DRUG INEFFECTIVE [None]
  - FEELING DRUNK [None]
  - IMPAIRED DRIVING ABILITY [None]
